FAERS Safety Report 9513772 (Version 1)
Quarter: 2013Q3

REPORT INFORMATION
  Report Type: Spontaneous
  Country: US (occurrence: US)
  Receive Date: 20130910
  Receipt Date: 20130910
  Transmission Date: 20140515
  Serious: No
  Sender: FDA-Public Use
  Company Number: US-TEVA-430804USA

PATIENT
  Age: 23 Year
  Sex: Female
  Weight: 83.99 kg

DRUGS (3)
  1. PLAN B ONE-STEP [Suspect]
     Dates: start: 20130823
  2. ALBUTEROL [Concomitant]
     Indication: ASTHMA
  3. MOTRIN [Concomitant]
     Indication: DYSMENORRHOEA

REACTIONS (4)
  - Headache [Not Recovered/Not Resolved]
  - Nausea [Recovered/Resolved]
  - Dizziness [Recovered/Resolved]
  - Hypomenorrhoea [Not Recovered/Not Resolved]
